FAERS Safety Report 8297675-6 (Version None)
Quarter: 2012Q2

REPORT INFORMATION
  Report Type: 
  Country: None (occurrence: None)
  Receive Date: 20120419
  Receipt Date: 20120410
  Transmission Date: 20120825
  Serious: Yes (Other)
  Sender: FDA-Public Use
  Company Number: US-JNJFOC-20120405177

PATIENT
  Sex: Male
  Weight: 79.38 kg

DRUGS (8)
  1. SIMVASTATIN [Concomitant]
     Indication: BLOOD CHOLESTEROL
     Route: 048
  2. SPIRONOLACTONE [Concomitant]
     Route: 048
  3. FUROSEMIDE [Concomitant]
     Indication: DIURETIC THERAPY
     Route: 048
  4. XARELTO [Suspect]
     Indication: CARDIAC FAILURE CONGESTIVE
     Route: 048
     Dates: start: 20120101
  5. CARVEDILOL [Concomitant]
     Indication: CARDIAC DISORDER
     Route: 048
  6. FERROSOL [Concomitant]
     Indication: ANAEMIA
     Route: 048
  7. LISINOPRIL [Concomitant]
     Indication: BLOOD PRESSURE
     Route: 048
     Dates: start: 20110101
  8. VITAMIN E (TOCOPHERYL ACETATE) [Concomitant]
     Route: 048

REACTIONS (6)
  - HAEMORRHOIDAL HAEMORRHAGE [None]
  - POLYP [None]
  - DIVERTICULITIS [None]
  - OFF LABEL USE [None]
  - ANAEMIA [None]
  - BLOOD URIC ACID INCREASED [None]
